FAERS Safety Report 10720916 (Version 1)
Quarter: 2015Q1

REPORT INFORMATION
  Report Type: Spontaneous
  Country: US (occurrence: US)
  Receive Date: 20150119
  Receipt Date: 20150119
  Transmission Date: 20150721
  Serious: No
  Sender: FDA-Public Use
  Company Number: US-UNITED THERAPEUTICS-UNT-2014-006355

PATIENT
  Sex: Male
  Weight: 9.48 kg

DRUGS (2)
  1. REMODULIN [Suspect]
     Active Substance: TREPROSTINIL
     Indication: COR PULMONALE CHRONIC
     Dosage: 0.016 ?G/KG/MIN, CONTINUING
     Route: 058
     Dates: start: 20140819
  2. REVATIO [Concomitant]
     Active Substance: SILDENAFIL CITRATE
     Indication: PRODUCT USED FOR UNKNOWN INDICATION

REACTIONS (4)
  - Skin disorder [Unknown]
  - Dermatitis contact [Unknown]
  - Infusion site erythema [Unknown]
  - Infusion site pruritus [Unknown]

NARRATIVE: CASE EVENT DATE: 2014
